FAERS Safety Report 4490711-4 (Version None)
Quarter: 2004Q4

REPORT INFORMATION
  Report Type: 
  Country: None (occurrence: None)
  Receive Date: 20041102
  Receipt Date: 20041014
  Transmission Date: 20050328
  Serious: Yes (Death, Hospitalization)
  Sender: FDA-Public Use
  Company Number: US-ROCHE-383478

PATIENT
  Age: 52 Year
  Sex: Male
  Weight: 66.2 kg

DRUGS (5)
  1. PEGASYS [Suspect]
     Indication: DRUG USE FOR UNKNOWN INDICATION
     Route: 058
     Dates: start: 20040415
  2. COPEGUS [Suspect]
     Indication: DRUG USE FOR UNKNOWN INDICATION
     Dosage: 2 AM, 2PM
     Route: 048
     Dates: start: 20040415
  3. PROTONIX [Concomitant]
  4. METHADONE HCL [Concomitant]
  5. LACTULOSE [Concomitant]

REACTIONS (5)
  - ARTHROPOD INFESTATION [None]
  - INFECTION [None]
  - PANCYTOPENIA [None]
  - RENAL FAILURE [None]
  - SKIN ULCER [None]
